FAERS Safety Report 26139822 (Version 1)
Quarter: 2025Q4

REPORT INFORMATION
  Report Type: Spontaneous
  Country: US (occurrence: None)
  Receive Date: 20251209
  Receipt Date: 20251209
  Transmission Date: 20260118
  Serious: Yes (Other)
  Sender: FDA-CTU
  Company Number: None

PATIENT
  Age: 58 Year
  Sex: Female
  Weight: 62.6 kg

DRUGS (17)
  1. AJOVY [Suspect]
     Active Substance: FREMANEZUMAB-VFRM
     Indication: Migraine
     Dosage: FREQUENCY : AS NEEDED;
     Dates: start: 20250919, end: 20251013
  2. VITAMINS [Concomitant]
     Active Substance: VITAMINS
  3. MAGNESIUM [Concomitant]
     Active Substance: MAGNESIUM
  4. VITAMIN D [Concomitant]
     Active Substance: VITAMIN D NOS
  5. methylated B vitamins [Concomitant]
  6. vegan omega 3s [Concomitant]
  7. LIPOSOMAL GLUTATHIONE [Concomitant]
  8. VITAMIN C [Concomitant]
     Active Substance: ASCORBIC ACID
  9. VALTREX [Concomitant]
     Active Substance: VALACYCLOVIR HYDROCHLORIDE
  10. CETIRIZINE [Concomitant]
     Active Substance: CETIRIZINE HYDROCHLORIDE
  11. ELECTROLYTES NOS [Concomitant]
     Active Substance: ELECTROLYTES NOS
  12. MELATONIN [Concomitant]
     Active Substance: MELATONIN
  13. ATIVAN [Concomitant]
     Active Substance: LORAZEPAM
  14. ZOLPIDEM [Concomitant]
     Active Substance: ZOLPIDEM TARTRATE
  15. ACETAMINOPHEN [Concomitant]
     Active Substance: ACETAMINOPHEN
  16. CELEBREX [Concomitant]
     Active Substance: CELECOXIB
  17. Joumavx [Concomitant]

REACTIONS (3)
  - Tinnitus [None]
  - Insomnia [None]
  - Vertigo [None]

NARRATIVE: CASE EVENT DATE: 20251023
